FAERS Safety Report 25599466 (Version 1)
Quarter: 2025Q3

REPORT INFORMATION
  Report Type: Spontaneous
  Country: US (occurrence: None)
  Receive Date: 20250724
  Receipt Date: 20250724
  Transmission Date: 20251021
  Serious: Yes (Death, Life-Threatening, Hospitalization)
  Sender: DEXCEL LTD.
  Company Number: US-MLMSERVICE-20250711-PI572643-00117-1

PATIENT
  Age: 62 Year
  Sex: Male

DRUGS (2)
  1. DEXAMETHASONE [Suspect]
     Active Substance: DEXAMETHASONE
     Indication: Chronic lymphocytic leukaemia
  2. OBINUTUZUMAB [Suspect]
     Active Substance: OBINUTUZUMAB
     Indication: Chronic lymphocytic leukaemia

REACTIONS (7)
  - Disseminated cryptococcosis [Fatal]
  - Aspergillus infection [Fatal]
  - Aspergilloma [Fatal]
  - Posterior reversible encephalopathy syndrome [Fatal]
  - Cardiac arrest [Fatal]
  - Systemic mycosis [Fatal]
  - Pneumonia cryptococcal [Fatal]
